FAERS Safety Report 5746869-X (Version None)
Quarter: 2008Q2

REPORT INFORMATION
  Report Type: 
  Country: None (occurrence: None)
  Receive Date: 20080522
  Receipt Date: 20080507
  Transmission Date: 20081010
  Serious: Yes (Death)
  Sender: FDA-Public Use
  Company Number: IT-GENENTECH-261062

PATIENT
  Sex: Male
  Weight: 66.6 kg

DRUGS (5)
  1. AVASTIN [Suspect]
     Indication: PLEURAL MESOTHELIOMA
     Dosage: 350 MG, Q21D
     Route: 042
     Dates: start: 20080402
  2. PEMETREXED [Suspect]
     Indication: PLEURAL MESOTHELIOMA
     Dosage: 885 MG, Q21D
     Route: 042
     Dates: start: 20080402
  3. CARBOPLATIN [Suspect]
     Indication: PLEURAL MESOTHELIOMA
     Dosage: 395 MG, Q21D
     Route: 042
     Dates: start: 20080427
  4. LORAZEPAM [Concomitant]
     Indication: DRUG USE FOR UNKNOWN INDICATION
     Dates: start: 19850101
  5. RAMIPRIL [Concomitant]
     Indication: DRUG USE FOR UNKNOWN INDICATION
     Dates: start: 19850101

REACTIONS (3)
  - MALIGNANT NEOPLASM PROGRESSION [None]
  - MESOTHELIOMA [None]
  - SUDDEN DEATH [None]
